FAERS Safety Report 5832254-9 (Version None)
Quarter: 2008Q3

REPORT INFORMATION
  Report Type: 
  Country: None (occurrence: None)
  Receive Date: 20080804
  Receipt Date: 20080801
  Transmission Date: 20090109
  Serious: Yes (Other)
  Sender: FDA-Public Use
  Company Number: A0731416A

PATIENT
  Age: 50 Year
  Sex: Female

DRUGS (3)
  1. ALLI [Suspect]
     Indication: WEIGHT LOSS DIET
     Route: 048
     Dates: start: 20080603
  2. STEROID [Suspect]
     Route: 065
  3. METAMUCIL [Concomitant]

REACTIONS (2)
  - DYSPNOEA [None]
  - VAGINAL HAEMORRHAGE [None]
